FAERS Safety Report 18982384 (Version 1)
Quarter: 2021Q1

REPORT INFORMATION
  Report Type: Spontaneous
  Country: US (occurrence: US)
  Receive Date: 20210308
  Receipt Date: 20210308
  Transmission Date: 20210420
  Serious: No
  Sender: FDA-Public Use
  Company Number: US-BAYER-2021-101258

PATIENT
  Age: 74 Year
  Sex: Female

DRUGS (3)
  1. VITAMIN B NOS [Concomitant]
     Active Substance: VITAMIN B
  2. VITAMIN B12 [Concomitant]
     Active Substance: CYANOCOBALAMIN
  3. MIRALAX [Suspect]
     Active Substance: POLYETHYLENE GLYCOL 3350
     Indication: GASTROINTESTINAL DISORDER
     Dosage: 8 OUNCES AND THEN 4 OUNCES
     Route: 048

REACTIONS (1)
  - Drug ineffective [Unknown]
